FAERS Safety Report 7748776-X (Version None)
Quarter: 2011Q3

REPORT INFORMATION
  Report Type: 
  Country: None (occurrence: None)
  Receive Date: 20110913
  Receipt Date: 20110913
  Transmission Date: 20111222
  Serious: Yes (Life-Threatening)
  Sender: FDA-Public Use
  Company Number: None

PATIENT
  Age: 76 Year
  Sex: Female
  Weight: 68 kg

DRUGS (2)
  1. DILAUDID [Suspect]
     Indication: KNEE ARTHROPLASTY
     Dosage: DILAUDID 2 MG ONCE IV
     Route: 042
     Dates: start: 20100617
  2. FENTANYL [Suspect]
     Dosage: FENTANYL 100 MCG ONCE IV
     Route: 042

REACTIONS (3)
  - HYPOPNOEA [None]
  - DEPRESSED LEVEL OF CONSCIOUSNESS [None]
  - APNOEA [None]
